FAERS Safety Report 22651331 (Version 3)
Quarter: 2024Q1

REPORT INFORMATION
  Report Type: Spontaneous
  Country: CA (occurrence: CA)
  Receive Date: 20230628
  Receipt Date: 20240131
  Transmission Date: 20240410
  Serious: Yes (Other)
  Sender: FDA-Public Use
  Company Number: CA-PFIZER INC-202300230827

PATIENT
  Age: 8 Year
  Sex: Male

DRUGS (3)
  1. SOMATROPIN [Suspect]
     Active Substance: SOMATROPIN
     Indication: Growth hormone deficiency
     Dosage: 1 DF,0.65 MG, 7 DAYS/WEEK,GOQUICK 5.3 MG PEN
     Route: 058
     Dates: start: 20230322
  2. HUMATROPE [Concomitant]
     Active Substance: SOMATROPIN
     Dosage: 1 DF
  3. PEDIAPRED [Concomitant]
     Active Substance: PREDNISOLONE SODIUM PHOSPHATE
     Dosage: 1 DF

REACTIONS (1)
  - Bone graft [Recovering/Resolving]

NARRATIVE: CASE EVENT DATE: 20230101
